FAERS Safety Report 12438043 (Version 1)
Quarter: 2016Q2

REPORT INFORMATION
  Report Type: Report from Study
  Country: US (occurrence: US)
  Receive Date: 20160606
  Receipt Date: 20160606
  Transmission Date: 20160815
  Serious: Yes (Other)
  Sender: FDA-Public Use
  Company Number: US-MDT-ADR-2016-00176

PATIENT
  Age: 53 Year
  Sex: Female

DRUGS (4)
  1. CLONIDINE. [Suspect]
     Active Substance: CLONIDINE
     Dosage: 159.90 MCG/DAY
     Route: 037
  2. BUPIVACAINE. [Suspect]
     Active Substance: BUPIVACAINE
     Dosage: 11.992 MG/DAY
     Route: 037
  3. COMPOUNDED BACLOFEN [Suspect]
     Active Substance: BACLOFEN
     Dosage: 39.97 MCG/DAY
     Route: 037
  4. DILAUDID [Suspect]
     Active Substance: HYDROMORPHONE HYDROCHLORIDE
     Dosage: 1.9987 MG/DAY
     Route: 037

REACTIONS (7)
  - Pain [Recovered/Resolved]
  - Sensory loss [Recovered/Resolved]
  - Drug withdrawal syndrome [Recovered/Resolved]
  - Chills [Recovered/Resolved]
  - Therapeutic response decreased [Recovered/Resolved]
  - Pruritus [Recovered/Resolved]
  - Infusion site mass [Recovered/Resolved]

NARRATIVE: CASE EVENT DATE: 20160114
